FAERS Safety Report 26192857 (Version 1)
Quarter: 2025Q4

REPORT INFORMATION
  Report Type: Spontaneous
  Country: US (occurrence: US)
  Receive Date: 20251223
  Receipt Date: 20251223
  Transmission Date: 20260118
  Serious: No
  Sender: Harrow Health
  Company Number: US-HARROW-HAR-2025-US-01711

PATIENT
  Sex: Female

DRUGS (1)
  1. VEVYE [Suspect]
     Active Substance: CYCLOSPORINE
     Dates: end: 20251124

REACTIONS (2)
  - Ocular hyperaemia [Unknown]
  - Ocular discomfort [Unknown]
